FAERS Safety Report 5262412-6 (Version None)
Quarter: 2007Q1

REPORT INFORMATION
  Report Type: 
  Country: None (occurrence: None)
  Receive Date: 20070309
  Receipt Date: 20070309
  Transmission Date: 20070707
  Serious: Yes (Disabling, Other)
  Sender: FDA-Public Use
  Company Number: None

PATIENT
  Sex: Female
  Weight: 70.3075 kg

DRUGS (1)
  1. LEVAQUIN LEVA-PAK 750 MG ORTHO [Suspect]
     Indication: DIVERTICULITIS
     Dosage: 1 TABLET EVERY DAY PO
     Route: 048
     Dates: start: 20070215, end: 20070221

REACTIONS (8)
  - BURSITIS [None]
  - DRUG DOSE OMISSION [None]
  - FRUSTRATION [None]
  - INSOMNIA [None]
  - MUSCULOSKELETAL PAIN [None]
  - NO THERAPEUTIC RESPONSE [None]
  - SUPRAVENTRICULAR TACHYCARDIA [None]
  - TENDON PAIN [None]
